FAERS Safety Report 11597864 (Version 2)
Quarter: 2016Q3

REPORT INFORMATION
  Report Type: Spontaneous
  Country: US (occurrence: US)
  Receive Date: 20151006
  Receipt Date: 20160907
  Transmission Date: 20161109
  Serious: Yes (Other)
  Sender: FDA-Public Use
  Company Number: US-JNJFOC-20150905029

PATIENT
  Age: 56 Year
  Sex: Male
  Weight: 92.99 kg

DRUGS (2)
  1. LEVAQUIN [Suspect]
     Active Substance: LEVOFLOXACIN
     Indication: GASTROENTERITIS SALMONELLA
     Route: 048
     Dates: start: 20081222, end: 20081229
  2. LEVAQUIN [Suspect]
     Active Substance: LEVOFLOXACIN
     Indication: GASTROENTERITIS SALMONELLA
     Route: 042
     Dates: start: 20081217, end: 20081222

REACTIONS (3)
  - Off label use [Unknown]
  - Product use issue [Unknown]
  - Neuropathy peripheral [Not Recovered/Not Resolved]

NARRATIVE: CASE EVENT DATE: 200812
